FAERS Safety Report 26076339 (Version 1)
Quarter: 2025Q4

REPORT INFORMATION
  Report Type: Spontaneous
  Country: EU (occurrence: EU)
  Receive Date: 20251121
  Receipt Date: 20251121
  Transmission Date: 20260118
  Serious: Yes (Life-Threatening)
  Sender: FRESENIUS KABI
  Company Number: None

PATIENT
  Age: 61 Year
  Sex: Female
  Weight: 78 kg

DRUGS (2)
  1. ROCURONIUM BROMIDE [Suspect]
     Active Substance: ROCURONIUM BROMIDE
     Indication: Neuromuscular blocking therapy
     Dosage: 60MG IN A SINGLE INTRAVENOUS ADMINISTRATION AT INDUCTION OF GENERAL ANESTHESIA
     Route: 042
     Dates: start: 20251110, end: 20251110
  2. SEVOFLURANE [Concomitant]
     Active Substance: SEVOFLURANE
     Indication: General anaesthesia
     Dosage: MAC 1 WITH 2.5% V/V FOR GENERAL INHALATIONAL ANESTHESIA
     Route: 055
     Dates: start: 20251110, end: 20251110

REACTIONS (1)
  - Anaphylactic shock [Recovered/Resolved]

NARRATIVE: CASE EVENT DATE: 20251110
